FAERS Safety Report 10968891 (Version 1)
Quarter: 2015Q1

REPORT INFORMATION
  Report Type: Spontaneous
  Country: CN (occurrence: CN)
  Receive Date: 20150331
  Receipt Date: 20150331
  Transmission Date: 20150721
  Serious: Yes (Other)
  Sender: FDA-Public Use
  Company Number: CN-CIPLA LTD.-2015CN02518

PATIENT

DRUGS (2)
  1. EPIRUBICIN [Suspect]
     Active Substance: EPIRUBICIN
     Indication: LEIOMYOSARCOMA
     Dosage: 100 MG DAY 1 TO DAY 5 REGIMEN/CYCLE FOR 3 CYCLES
     Route: 042
     Dates: start: 20121211, end: 20130223
  2. CISPLATIN. [Suspect]
     Active Substance: CISPLATIN
     Indication: LEIOMYOSARCOMA
     Dosage: 20 MG DAY 1 TO DAY 5 REGIMEN/CYCLE FOR 3 CYCLES
     Route: 042
     Dates: start: 20121211, end: 20130223

REACTIONS (1)
  - Leiomyosarcoma recurrent [Recovering/Resolving]

NARRATIVE: CASE EVENT DATE: 20130320
